FAERS Safety Report 6787442-4 (Version None)
Quarter: 2010Q2

REPORT INFORMATION
  Report Type: 
  Country: None (occurrence: None)
  Receive Date: 20100623
  Receipt Date: 20070428
  Transmission Date: 20101027
  Serious: No
  Sender: FDA-Public Use
  Company Number: US-PFIZER INC-2007035193

PATIENT
  Sex: Female
  Weight: 29.48 kg

DRUGS (5)
  1. DEPO-PROVERA SUSPENSION/INJ [Suspect]
     Indication: CONTRACEPTION
     Dosage: LAST INJECTION
     Dates: start: 20060101, end: 20060101
  2. DEPO-PROVERA SUSPENSION/INJ [Suspect]
     Indication: POLYCYSTIC OVARIES
  3. CHANTIX [Concomitant]
     Indication: SMOKING CESSATION THERAPY
     Dosage: DAILY FOR 3 DAYS
     Dates: start: 20070424
  4. EFFEXOR [Concomitant]
  5. UNIRETIC [Concomitant]
     Indication: HYPERTENSION
     Dates: end: 20070401

REACTIONS (2)
  - AMENORRHOEA [None]
  - WEIGHT INCREASED [None]
